FAERS Safety Report 5800743-9 (Version None)
Quarter: 2008Q3

REPORT INFORMATION
  Report Type: 
  Country: None (occurrence: None)
  Receive Date: 20080703
  Receipt Date: 20080620
  Transmission Date: 20090109
  Serious: Yes (Other)
  Sender: FDA-Public Use
  Company Number: US-GENENTECH-263815

PATIENT
  Sex: Female

DRUGS (5)
  1. HERCEPTIN [Suspect]
     Indication: BREAST CANCER METASTATIC
     Dosage: 8 MG/KG, SINGLE
     Route: 042
  2. HERCEPTIN [Suspect]
     Dosage: 4 MG/KG, Q14D
     Route: 042
  3. HERCEPTIN [Suspect]
     Dosage: 6 MG/KG, SINGLE
     Route: 042
  4. GEMCITABINE [Suspect]
     Indication: BREAST CANCER METASTATIC
     Dosage: 1500 MG/M2, Q14D
     Route: 042
  5. CARBOPLATIN [Suspect]
     Indication: BREAST CANCER METASTATIC
     Dosage: 2.5 AUC, Q14D
     Route: 042

REACTIONS (1)
  - ALANINE AMINOTRANSFERASE INCREASED [None]
